FAERS Safety Report 6063906-6 (Version None)
Quarter: 2009Q1

REPORT INFORMATION
  Report Type: 
  Country: None (occurrence: None)
  Receive Date: 20090130
  Receipt Date: 20090122
  Transmission Date: 20090719
  Serious: Yes (Hospitalization)
  Sender: FDA-Public Use
  Company Number: US025158

PATIENT
  Age: 49 Year
  Sex: Male
  Weight: 71.8498 kg

DRUGS (2)
  1. ARMODAFINIL [Suspect]
     Indication: SCHIZOPHRENIA
     Dosage: 250 MG QAM ORAL
     Route: 048
     Dates: start: 20081113, end: 20081209
  2. QUETIAPINE FUMARATE [Concomitant]

REACTIONS (3)
  - RASH ERYTHEMATOUS [None]
  - RASH MORBILLIFORM [None]
  - RASH PAPULAR [None]
